FAERS Safety Report 9547377 (Version 2)
Quarter: 2013Q4

REPORT INFORMATION
  Report Type: Spontaneous
  Country: JP (occurrence: JP)
  Receive Date: 20130924
  Receipt Date: 20131115
  Transmission Date: 20140711
  Serious: Yes (Life-Threatening, Other)
  Sender: FDA-Public Use
  Company Number: JP-TAKEDA-2013TJP001065

PATIENT
  Age: 72 Year
  Sex: Female
  Weight: 39 kg

DRUGS (6)
  1. NESINA TABLETS 25MG [Suspect]
     Indication: TYPE 2 DIABETES MELLITUS
     Dosage: 25 MG, QD
     Route: 048
     Dates: start: 20120307
  2. BLOPRESS [Concomitant]
     Dosage: 8 MG, QD
     Route: 048
  3. EVISTA [Concomitant]
     Dosage: 60 MG, QD
     Route: 048
  4. PARIET [Concomitant]
     Dosage: 10 MG, QD
     Route: 048
  5. TSUMURA RIKKUNSHI-TO [Concomitant]
     Dosage: 2.5 G, BID
     Route: 048
  6. EPADEL                             /01682402/ [Concomitant]
     Dosage: 900 MG, BID
     Route: 048

REACTIONS (1)
  - Gastric cancer [Unknown]
